FAERS Safety Report 9312156 (Version 2)
Quarter: 2013Q2

REPORT INFORMATION
  Report Type: Spontaneous
  Country: US (occurrence: US)
  Receive Date: 20130528
  Receipt Date: 20130605
  Transmission Date: 20140414
  Serious: Yes (Hospitalization)
  Sender: FDA-Public Use
  Company Number: US-GILEAD-2013-0075452

PATIENT
  Sex: Female

DRUGS (2)
  1. LETAIRIS [Suspect]
     Indication: PRODUCT USED FOR UNKNOWN INDICATION
     Dosage: 10 MG, QD
     Dates: start: 20091222
  2. ADCIRCA [Concomitant]

REACTIONS (8)
  - Intensive care [Unknown]
  - Gait disturbance [Unknown]
  - Oropharyngeal discomfort [Unknown]
  - Hyperhidrosis [Unknown]
  - Yellow skin [Unknown]
  - Ocular icterus [Unknown]
  - Palpitations [Unknown]
  - Dizziness [Unknown]
